FAERS Safety Report 18241390 (Version 1)
Quarter: 2020Q3

REPORT INFORMATION
  Report Type: Report from Study
  Country: BR (occurrence: BR)
  Receive Date: 20200908
  Receipt Date: 20200908
  Transmission Date: 20201103
  Serious: Yes (Death, Other)
  Sender: FDA-Public Use
  Company Number: NVSC2020BR244587

PATIENT
  Sex: Female

DRUGS (1)
  1. VOTRIENT [Suspect]
     Active Substance: PAZOPANIB HYDROCHLORIDE
     Indication: PRODUCT USED FOR UNKNOWN INDICATION
     Dosage: 40 MG (2 X PER DAY)
     Route: 065
     Dates: start: 20200427

REACTIONS (4)
  - Renal cancer [Unknown]
  - Metastasis [Unknown]
  - Respiratory failure [Fatal]
  - Lung neoplasm malignant [Fatal]
